FAERS Safety Report 6105584-3 (Version None)
Quarter: 2009Q1

REPORT INFORMATION
  Report Type: 
  Country: None (occurrence: None)
  Receive Date: 20090304
  Receipt Date: 20090304
  Transmission Date: 20090719
  Serious: No
  Sender: FDA-Public Use
  Company Number: None

PATIENT
  Age: 57 Year
  Sex: Female
  Weight: 74.8435 kg

DRUGS (1)
  1. FLUTICASONE PROPIONATE [Suspect]
     Indication: RHINITIS
     Dosage: 2 SPRAYS IN EACH NOSTRIL 1 TIMES DAILY NASAL
     Route: 045
     Dates: start: 20090201, end: 20090228

REACTIONS (1)
  - VERTIGO [None]
